FAERS Safety Report 5221225-1 (Version None)
Quarter: 2007Q1

REPORT INFORMATION
  Report Type: 
  Country: None (occurrence: None)
  Receive Date: 20070126
  Receipt Date: 20070119
  Transmission Date: 20070707
  Serious: Yes (Hospitalization, Other)
  Sender: FDA-Public Use
  Company Number: PFIZER INC-2007001890

PATIENT
  Sex: Female
  Weight: 90.7 kg

DRUGS (6)
  1. LIPITOR [Suspect]
     Indication: BLOOD CHOLESTEROL INCREASED
     Dates: start: 20020101, end: 20040101
  2. NIASPAN [Suspect]
     Indication: BLOOD CHOLESTEROL INCREASED
  3. MEVACOR [Suspect]
     Dates: start: 20020107, end: 20040212
  4. ALL OTHER THERAPEUTIC PRODUCTS [Concomitant]
  5. PARNATE [Concomitant]
  6. VITAMINS [Concomitant]

REACTIONS (7)
  - DRUG INTOLERANCE [None]
  - DYSSTASIA [None]
  - HERPES ZOSTER [None]
  - MUSCULAR WEAKNESS [None]
  - MYALGIA [None]
  - PAIN IN EXTREMITY [None]
  - SPINAL OPERATION [None]
